FAERS Safety Report 5001362-7 (Version None)
Quarter: 2006Q2

REPORT INFORMATION
  Report Type: 
  Country: None (occurrence: None)
  Receive Date: 20060512
  Receipt Date: 20060504
  Transmission Date: 20061013
  Serious: Yes (Disabling)
  Sender: FDA-Public Use
  Company Number: US-MERCK-0605USA00879

PATIENT
  Age: 50 Year
  Sex: Male
  Weight: 105 kg

DRUGS (4)
  1. VIOXX [Suspect]
     Indication: BACK PAIN
     Route: 048
     Dates: start: 20020201, end: 20040901
  2. VASOTEC [Concomitant]
     Route: 048
  3. LIPITOR [Concomitant]
     Route: 065
  4. FLONASE [Concomitant]
     Route: 065

REACTIONS (1)
  - MYOCARDIAL INFARCTION [None]
